FAERS Safety Report 8588100-6 (Version None)
Quarter: 2012Q3

REPORT INFORMATION
  Report Type: 
  Country: None (occurrence: None)
  Receive Date: 20120731
  Receipt Date: 20120717
  Transmission Date: 20120928
  Serious: Yes (Hospitalization, Other)
  Sender: FDA-Public Use
  Company Number: 2011-000188

PATIENT
  Age: 54 Year
  Sex: Female

DRUGS (18)
  1. NIACIN [Concomitant]
  2. SIMVASTATIN [Concomitant]
  3. ACTONEL [Suspect]
     Indication: OSTEOPOROSIS
     Dosage: 35 MG ONCE WEEKLY, ORAL
     Route: 048
     Dates: start: 20061101, end: 20080801
  4. ACTONEL [Suspect]
     Indication: OSTEOPENIA
     Dosage: 35 MG ONCE WEEKLY, ORAL
     Route: 048
     Dates: start: 20061101, end: 20080801
  5. CALCIUM CITRATE (CALCIUM CITRATE) [Concomitant]
  6. COLECALCIFEROL (COLECALCIFEROL) [Concomitant]
  7. FOSAMAX [Suspect]
     Indication: OSTEOPENIA
     Dosage: 70 MG ONCE WEEKLY, ORAL
     Route: 048
     Dates: start: 20020801, end: 20061120
  8. FOSAMAX [Suspect]
     Indication: OSTEOPOROSIS
     Dosage: 70 MG ONCE WEEKLY, ORAL
     Route: 048
     Dates: start: 20020801, end: 20061120
  9. VITAMIN E /00110501/ (TOCOPHEROL) [Concomitant]
  10. FISH OIL (FISH OIL) [Concomitant]
  11. CALTRATE + D /00944201/ (CALCIUM CARBONATE, COLECALCIFEROL) [Concomitant]
  12. ACTONEL [Suspect]
     Indication: OSTEOPOROSIS
     Dosage: 150 MG ONCE MONTHLY, ORAL
     Route: 048
     Dates: start: 20081230, end: 20100301
  13. ACTONEL [Suspect]
     Indication: OSTEOPENIA
     Dosage: 150 MG ONCE MONTHLY, ORAL
     Route: 048
     Dates: start: 20081230, end: 20100301
  14. VITAMINS /90003601/ [Concomitant]
  15. VITAMIN C /0000800/1 (ASCORBIC ACID) [Concomitant]
  16. ASPIRIN [Concomitant]
  17. ALLEGRA [Concomitant]
  18. MUCINEX [Concomitant]

REACTIONS (22)
  - FRACTURE DISPLACEMENT [None]
  - LOW TURNOVER OSTEOPATHY [None]
  - FALL [None]
  - STRESS FRACTURE [None]
  - BONE DISORDER [None]
  - ARTHROPATHY [None]
  - PAIN [None]
  - GAIT DISTURBANCE [None]
  - UTERINE DILATION AND CURETTAGE [None]
  - MENOPAUSE [None]
  - VARICOSE VEIN OPERATION [None]
  - ATYPICAL FEMUR FRACTURE [None]
  - JOINT INJURY [None]
  - MUSCULAR WEAKNESS [None]
  - JOINT DISLOCATION [None]
  - MULTIPLE FRACTURES [None]
  - ARTHRALGIA [None]
  - WRIST FRACTURE [None]
  - HYPERCALCIURIA [None]
  - UPPER LIMB FRACTURE [None]
  - FRACTURE DELAYED UNION [None]
  - FOOT FRACTURE [None]
